FAERS Safety Report 15902463 (Version 1)
Quarter: 2019Q1

REPORT INFORMATION
  Report Type: Report from Study
  Country: US (occurrence: US)
  Receive Date: 20190201
  Receipt Date: 20190201
  Transmission Date: 20190417
  Serious: Yes (Other)
  Sender: FDA-Public Use
  Company Number: US-AMGEN-USASL2019013952

PATIENT
  Sex: Female

DRUGS (1)
  1. AIMOVIG [Suspect]
     Active Substance: ERENUMAB-AOOE
     Indication: MIGRAINE WITHOUT AURA
     Dosage: 70 MG, UNK
     Route: 065

REACTIONS (6)
  - Speech disorder [Unknown]
  - Insomnia [Unknown]
  - Anxiety [Unknown]
  - Confusional state [Unknown]
  - Disturbance in attention [Unknown]
  - Pain [Unknown]
